FAERS Safety Report 5715783-8 (Version None)
Quarter: 2008Q2

REPORT INFORMATION
  Report Type: 
  Country: None (occurrence: None)
  Receive Date: 20080424
  Receipt Date: 20080424
  Transmission Date: 20081010
  Serious: No
  Sender: FDA-Public Use
  Company Number: None

PATIENT
  Sex: Female
  Weight: 16 kg

DRUGS (1)
  1. HEP FLUSH KIT [Suspect]
     Indication: CENTRAL VENOUS CATHETERISATION
     Dosage: 3 ML EVERY 8 HOURS IV
     Route: 042
     Dates: start: 20080329, end: 20080411

REACTIONS (6)
  - ABDOMINAL PAIN [None]
  - ANOREXIA [None]
  - HYPOTENSION [None]
  - NAUSEA [None]
  - PHARMACEUTICAL PRODUCT COMPLAINT [None]
  - VOMITING [None]
